FAERS Safety Report 9378131 (Version 1)
Quarter: 2013Q3

REPORT INFORMATION
  Report Type: Spontaneous
  Country: JP (occurrence: JP)
  Receive Date: 20130701
  Receipt Date: 20130701
  Transmission Date: 20140515
  Serious: Yes (Other)
  Sender: FDA-Public Use
  Company Number: JP-GLAXOSMITHKLINE-B0899716A

PATIENT
  Age: 58 Year
  Sex: Male

DRUGS (2)
  1. LAMICTAL [Suspect]
     Indication: BIPOLAR DISORDER
     Dosage: 75MG PER DAY
     Route: 048
     Dates: start: 201303, end: 20130426
  2. ABILIFY [Concomitant]
     Indication: BIPOLAR DISORDER
     Dosage: 12MG PER DAY
     Route: 048
     Dates: end: 201305

REACTIONS (1)
  - Pancytopenia [Recovered/Resolved]
